FAERS Safety Report 4909727-6 (Version None)
Quarter: 2006Q1

REPORT INFORMATION
  Report Type: 
  Country: None (occurrence: None)
  Receive Date: 20060213
  Receipt Date: 20060208
  Transmission Date: 20060701
  Serious: Yes (Hospitalization)
  Sender: FDA-Public Use
  Company Number: FR-MERCK-0602FRA00022

PATIENT
  Age: 70 Year
  Sex: Male
  Weight: 70 kg

DRUGS (10)
  1. HYZAAR [Suspect]
     Indication: HYPERTENSION
     Route: 048
     Dates: start: 20041215, end: 20060110
  2. LERCANIDIPINE [Suspect]
     Route: 048
     Dates: start: 20051220, end: 20060110
  3. MOXIFLOXACIN HYDROCHLORIDE [Suspect]
     Indication: BRONCHOPNEUMONIA
     Route: 048
     Dates: start: 20051213, end: 20051220
  4. FENSPIRIDE HYDROCHLORIDE [Suspect]
     Route: 048
     Dates: start: 20051213, end: 20051223
  5. FLUOXETINE HYDROCHLORIDE [Concomitant]
     Indication: DEPRESSION
     Route: 048
     Dates: start: 20040101
  6. TRIMEPRAZINE TARTRATE [Concomitant]
     Route: 048
     Dates: start: 20040101
  7. LORMETAZEPAM [Concomitant]
     Route: 048
  8. CLORAZEPATE DIPOTASSIUM [Concomitant]
     Route: 048
  9. BETAMETHASONE [Concomitant]
     Indication: BRONCHOPNEUMONIA
     Route: 048
     Dates: start: 20051213
  10. AMBROXOL HYDROCHLORIDE [Concomitant]
     Indication: BRONCHOPNEUMONIA
     Route: 048
     Dates: start: 20051213

REACTIONS (2)
  - HAEMATOMA [None]
  - THROMBOCYTOPENIC PURPURA [None]
